FAERS Safety Report 11787505 (Version 1)
Quarter: 2015Q4

REPORT INFORMATION
  Report Type: Spontaneous
  Country: DK (occurrence: DK)
  Receive Date: 20151130
  Receipt Date: 20151130
  Transmission Date: 20160305
  Serious: No
  Sender: FDA-Public Use
  Company Number: DK-009507513-1511DNK013925

PATIENT
  Sex: Female

DRUGS (1)
  1. DIPRODERM [Suspect]
     Active Substance: BETAMETHASONE DIPROPIONATE
     Dosage: UNK
     Route: 001

REACTIONS (1)
  - Incorrect route of drug administration [Unknown]
